FAERS Safety Report 5275582-0 (Version None)
Quarter: 2007Q1

REPORT INFORMATION
  Report Type: 
  Country: None (occurrence: None)
  Receive Date: 20061213
  Receipt Date: 20060418
  Transmission Date: 20070707
  Serious: No
  Sender: FDA-Public Use
  Company Number: 2006UW06807

PATIENT
  Age: 43 Year
  Sex: Female
  Weight: 58.967 kg

DRUGS (5)
  1. SEROQUEL [Suspect]
     Indication: BIPOLAR DISORDER
     Dosage: 25 MG; PO
     Route: 048
     Dates: start: 20060401, end: 20060401
  2. SEROQUEL [Suspect]
     Indication: BIPOLAR DISORDER
     Dosage: 100 MG; PO
     Route: 048
     Dates: end: 20060201
  3. PAXIL [Concomitant]
  4. CLONOPIN [Concomitant]
  5. PREMARIN [Concomitant]

REACTIONS (2)
  - DYSKINESIA [None]
  - SOMNOLENCE [None]
